FAERS Safety Report 9463597 (Version 1)
Quarter: 2013Q3

REPORT INFORMATION
  Report Type: Spontaneous
  Country: US (occurrence: None)
  Receive Date: 20130815
  Receipt Date: 20130815
  Transmission Date: 20140515
  Serious: No
  Sender: FDA-Public Use
  Company Number: None

PATIENT
  Age: 55 Year
  Sex: Male

DRUGS (1)
  1. NEXAVAR 200MG BAYER [Suspect]
     Indication: HEPATIC CANCER
     Route: 048
     Dates: start: 20130104

REACTIONS (2)
  - Skin ulcer [None]
  - Pain in extremity [None]
